FAERS Safety Report 10254227 (Version 2)
Quarter: 2014Q3

REPORT INFORMATION
  Report Type: Report from Study
  Country: US (occurrence: US)
  Receive Date: 20140624
  Receipt Date: 20140822
  Transmission Date: 20150326
  Serious: Yes (Hospitalization, Other)
  Sender: FDA-Public Use
  Company Number: US-ROCHE-1421712

PATIENT
  Sex: Female

DRUGS (5)
  1. SINGULAIR [Concomitant]
     Active Substance: MONTELUKAST SODIUM
     Indication: HYPERSENSITIVITY
  2. AMLODIPINE [Concomitant]
     Active Substance: AMLODIPINE BESYLATE
     Indication: HYPERTENSION
     Route: 065
  3. XOLAIR [Suspect]
     Active Substance: OMALIZUMAB
     Indication: OCCUPATIONAL ASTHMA
     Dosage: 1.25 OR 1.5
     Route: 065
     Dates: start: 2005, end: 2007
  4. PROAIR HFA [Concomitant]
     Active Substance: ALBUTEROL SULFATE
  5. ADVAIR HFA [Concomitant]
     Active Substance: FLUTICASONE PROPIONATE\SALMETEROL XINAFOATE

REACTIONS (16)
  - Pulmonary congestion [Unknown]
  - Paranasal sinus discomfort [Unknown]
  - Respiratory tract infection [Unknown]
  - Arthralgia [Unknown]
  - Cholecystectomy [Unknown]
  - Sinusitis [Unknown]
  - Pulmonary function test decreased [Unknown]
  - Gastrooesophageal reflux disease [Unknown]
  - Fluid retention [Unknown]
  - Allergy to vaccine [Unknown]
  - Asthma [Unknown]
  - Arthritis [Unknown]
  - Blood pressure diastolic decreased [Unknown]
  - Gastrointestinal infection [Unknown]
  - Weight increased [Unknown]
  - Cough [Unknown]

NARRATIVE: CASE EVENT DATE: 2009
